FAERS Safety Report 10685906 (Version 1)
Quarter: 2014Q4

REPORT INFORMATION
  Report Type: Spontaneous
  Country: FR (occurrence: FR)
  Receive Date: 20141231
  Receipt Date: 20141231
  Transmission Date: 20150529
  Serious: Yes (Hospitalization)
  Sender: FDA-Public Use
  Company Number: FR-PFIZER INC-2014359894

PATIENT
  Age: 68 Year
  Sex: Male

DRUGS (11)
  1. MUPHORAN [Suspect]
     Active Substance: FOTEMUSTINE
     Indication: METASTATIC MALIGNANT MELANOMA
     Dosage: 182 MG, WEEKLY
     Route: 041
     Dates: start: 20141119, end: 20141203
  2. MORPHINE SULFATE. [Concomitant]
     Active Substance: MORPHINE SULFATE
     Dosage: 20 MG, 1X/DAY
     Route: 048
  3. PRIMPERAN [Concomitant]
     Active Substance: METOCLOPRAMIDE HYDROCHLORIDE
     Dosage: UNK
     Route: 048
  4. MOTILIUM [Concomitant]
     Active Substance: DOMPERIDONE
     Dosage: UNK
     Route: 048
  5. TRANSIPEG [Concomitant]
     Active Substance: POLYETHYLENE GLYCOL 3350
     Dosage: UNK
     Route: 048
  6. CORTANCYL [Concomitant]
     Active Substance: PREDNISONE
     Dosage: 20 MG, 1X/DAY
     Route: 048
  7. LERCAN [Concomitant]
     Active Substance: LERCANIDIPINE
     Dosage: UNK
     Route: 048
  8. LYRICA [Concomitant]
     Active Substance: PREGABALIN
     Dosage: 75 MG, 2X/DAY
     Route: 048
  9. PARACETAMOL [Concomitant]
     Active Substance: ACETAMINOPHEN
     Dosage: UNK
     Route: 048
  10. SOLU-MEDROL [Suspect]
     Active Substance: METHYLPREDNISOLONE SODIUM SUCCINATE
     Indication: PREMEDICATION
     Dosage: 60 MG, WEEKLY
     Route: 041
     Dates: start: 20141119, end: 20141203
  11. ZOPHREN [Suspect]
     Active Substance: ONDANSETRON
     Indication: PREMEDICATION
     Dosage: 8 MG, WEEKLY
     Route: 041
     Dates: start: 20141119, end: 20141203

REACTIONS (1)
  - Atrial fibrillation [Not Recovered/Not Resolved]

NARRATIVE: CASE EVENT DATE: 20141203
